FAERS Safety Report 5578034-3 (Version None)
Quarter: 2007Q4

REPORT INFORMATION
  Report Type: 
  Country: None (occurrence: None)
  Receive Date: 20071227
  Receipt Date: 20071213
  Transmission Date: 20080405
  Serious: Yes (Life-Threatening, Hospitalization)
  Sender: FDA-Public Use
  Company Number: 2007-04176

PATIENT
  Age: 65 Year
  Sex: Female

DRUGS (6)
  1. VELCADE [Suspect]
     Indication: MULTIPLE MYELOMA
     Dates: start: 20071023, end: 20071106
  2. DEXAMETHASONE TAB [Suspect]
     Indication: MULTIPLE MYELOMA
     Dosage: 20 MG
  3. CIFLOX(CIPROFLOXACIN) [Suspect]
     Indication: DRUG USE FOR UNKNOWN INDICATION
     Dosage: 750.00 MG
     Dates: start: 20071031, end: 20071105
  4. CEFPODOXIME PROXETIL [Concomitant]
  5. VALACYCLOVIR HCL [Concomitant]
  6. OMEPRAZOLE [Concomitant]

REACTIONS (8)
  - ASTHENIA [None]
  - CONVULSION [None]
  - DIARRHOEA [None]
  - ECCHYMOSIS [None]
  - EPISTAXIS [None]
  - PYREXIA [None]
  - RENAL FAILURE ACUTE [None]
  - THROMBOTIC THROMBOCYTOPENIC PURPURA [None]
